FAERS Safety Report 24443815 (Version 2)
Quarter: 2024Q4

REPORT INFORMATION
  Report Type: Report from Study
  Country: US (occurrence: US)
  Receive Date: 20241016
  Receipt Date: 20241017
  Transmission Date: 20250115
  Serious: No
  Sender: ROCHE
  Company Number: US-ROCHE-2224551

PATIENT
  Age: 45 Year
  Sex: Female

DRUGS (8)
  1. RITUXAN [Suspect]
     Active Substance: RITUXIMAB
     Indication: Neuromyelitis optica spectrum disorder
     Dosage: DATE OF NEXT TREATMENT: 03/DEC/2018, ANTICIPATED DATE OF TREATMENT: 11/JUL/2022, INFUSE 500MG INTRAV
     Route: 041
  2. RITUXAN [Suspect]
     Active Substance: RITUXIMAB
     Indication: Demyelination
     Dosage: IV INFUSION ON DAY 0 AND DAY 15
     Route: 041
  3. RITUXAN [Suspect]
     Active Substance: RITUXIMAB
     Dosage: SINGLE VIAL
     Route: 041
     Dates: start: 20230531
  4. ACETAMINOPHEN [Concomitant]
     Active Substance: ACETAMINOPHEN
  5. METHYLPREDNISOLONE [Concomitant]
     Active Substance: METHYLPREDNISOLONE
  6. DIPHENHYDRAMINE [Concomitant]
     Active Substance: DIPHENHYDRAMINE
  7. CLOMID [Concomitant]
     Active Substance: CLOMIPHENE CITRATE
  8. YASMIN [Concomitant]
     Active Substance: DROSPIRENONE\ETHINYL ESTRADIOL

REACTIONS (2)
  - Off label use [Unknown]
  - No adverse event [Unknown]
